FAERS Safety Report 8459675-2 (Version None)
Quarter: 2012Q2

REPORT INFORMATION
  Report Type: 
  Country: None (occurrence: None)
  Receive Date: 20120622
  Receipt Date: 20120612
  Transmission Date: 20120825
  Serious: Yes (Other)
  Sender: FDA-Public Use
  Company Number: SE-BRISTOL-MYERS SQUIBB COMPANY-16417131

PATIENT
  Age: 47 Year
  Sex: Male

DRUGS (7)
  1. DOSTINEX [Concomitant]
     Indication: HYPERPROLACTINAEMIA
  2. IBRUPROFEN [Suspect]
  3. ABILIFY [Suspect]
     Indication: AGGRESSION
     Route: 048
     Dates: start: 20071101
  4. ABILIFY [Suspect]
     Indication: ANXIETY
     Route: 048
     Dates: start: 20071101
  5. ABILIFY [Suspect]
     Indication: SUBSTANCE ABUSE
     Route: 048
     Dates: start: 20071101
  6. ABILIFY [Suspect]
     Indication: OBSESSIVE-COMPULSIVE DISORDER
     Route: 048
     Dates: start: 20071101
  7. OMEPRAZOLE [Concomitant]

REACTIONS (4)
  - HEPATIC CIRRHOSIS [None]
  - HYPOCHROMIC ANAEMIA [None]
  - MEGAKARYOCYTES ABNORMAL [None]
  - GRANULOCYTES ABNORMAL [None]
